FAERS Safety Report 8721886 (Version 24)
Quarter: 2015Q2

REPORT INFORMATION
  Report Type: Report from Study
  Country: CA (occurrence: CA)
  Receive Date: 20120814
  Receipt Date: 20150610
  Transmission Date: 20150821
  Serious: Yes (Hospitalization, Other)
  Sender: FDA-Public Use
  Company Number: PHHY2012CA060357

PATIENT
  Age: 81 Year
  Sex: Female

DRUGS (11)
  1. COUMADINE [Suspect]
     Active Substance: WARFARIN SODIUM
     Indication: PRODUCT USED FOR UNKNOWN INDICATION
     Route: 065
  2. FRAGMIN [Concomitant]
     Active Substance: DALTEPARIN SODIUM
     Indication: PRODUCT USED FOR UNKNOWN INDICATION
     Route: 065
     Dates: start: 20141214
  3. IRON [Concomitant]
     Active Substance: IRON
     Indication: PRODUCT USED FOR UNKNOWN INDICATION
     Route: 042
     Dates: start: 20120807
  4. ATORVASTATIN [Concomitant]
     Active Substance: ATORVASTATIN
     Indication: PRODUCT USED FOR UNKNOWN INDICATION
     Route: 065
  5. SANDOSTATIN LAR DEPOT [Suspect]
     Active Substance: OCTREOTIDE ACETATE
     Indication: GASTROINTESTINAL ANGIODYSPLASIA HAEMORRHAGIC
     Dosage: 20 MG, QMO
     Route: 030
     Dates: start: 20120322
  6. SANDOSTATIN LAR DEPOT [Suspect]
     Active Substance: OCTREOTIDE ACETATE
     Dosage: 30 MG, EVERY 4 WEEKS
     Route: 030
  7. ONGLYZA [Concomitant]
     Active Substance: SAXAGLIPTIN HYDROCHLORIDE
     Indication: PRODUCT USED FOR UNKNOWN INDICATION
     Route: 065
  8. SANDOSTATIN [Suspect]
     Active Substance: OCTREOTIDE ACETATE
     Indication: GASTROINTESTINAL ANGIODYSPLASIA HAEMORRHAGIC
     Dosage: UNK UNK, BID
     Route: 058
     Dates: start: 201202
  9. CARDIZEM [Concomitant]
     Active Substance: DILTIAZEM HYDROCHLORIDE
     Indication: PRODUCT USED FOR UNKNOWN INDICATION
     Route: 065
  10. SANDOSTATIN LAR DEPOT [Suspect]
     Active Substance: OCTREOTIDE ACETATE
     Dosage: UNK, EVERY 4 WEEKS
     Route: 030
  11. ATACAND [Concomitant]
     Active Substance: CANDESARTAN CILEXETIL
     Indication: PRODUCT USED FOR UNKNOWN INDICATION
     Route: 065

REACTIONS (34)
  - Cardiac failure [Recovering/Resolving]
  - Fatigue [Recovering/Resolving]
  - Pneumonia [Recovered/Resolved]
  - Hyperhidrosis [Unknown]
  - Faeces discoloured [Unknown]
  - Uterine cancer [Unknown]
  - Anaemia [Recovered/Resolved]
  - Body temperature increased [Recovering/Resolving]
  - Polydipsia [Unknown]
  - Infection [Unknown]
  - Pollakiuria [Unknown]
  - Eating disorder [Unknown]
  - Vaginal haemorrhage [Recovered/Resolved]
  - Hepatic haematoma [Recovering/Resolving]
  - Heart rate decreased [Recovering/Resolving]
  - Thirst [Unknown]
  - Abdominal pain [Unknown]
  - Dyspnoea [Recovering/Resolving]
  - Gallbladder disorder [Unknown]
  - Type 2 diabetes mellitus [Unknown]
  - Polyuria [Unknown]
  - Weight increased [Unknown]
  - Epistaxis [Recovered/Resolved]
  - Pyrexia [Unknown]
  - Productive cough [Unknown]
  - Blood glucose increased [Recovered/Resolved]
  - Blood pressure diastolic decreased [Unknown]
  - Asthenia [Unknown]
  - Dysphonia [Recovered/Resolved]
  - Product use issue [Unknown]
  - Endometrial hypertrophy [Recovered/Resolved]
  - Escherichia infection [Recovering/Resolving]
  - Post procedural bile leak [Unknown]
  - Oxygen saturation decreased [Unknown]

NARRATIVE: CASE EVENT DATE: 20120322
